FAERS Safety Report 8823366 (Version 2)
Quarter: 2012Q4

REPORT INFORMATION
  Report Type: 
  Country: US (occurrence: US)
  Receive Date: 20121003
  Receipt Date: 20121101
  Transmission Date: 20130627
  Serious: Yes (Other)
  Sender: FDA-Public Use
  Company Number: US-ALEXION PHARMACEUTICALS INC.-A201201845

PATIENT
  Sex: Female
  Weight: 71.2 kg

DRUGS (4)
  1. SOLIRIS 300MG [Suspect]
     Indication: PAROXYSMAL NOCTURNAL HAEMOGLOBINURIA
     Dosage: 900 mg, q2w
     Route: 042
     Dates: start: 200904
  2. PROCRIT [Concomitant]
     Indication: ANAEMIA
     Dosage: 40,000 QW PRN
     Route: 058
  3. PROCRIT [Concomitant]
     Indication: HAEMOGLOBIN DECREASED
  4. COUMADIN [Concomitant]
     Indication: PROPHYLAXIS
     Dosage: UNK
     Route: 048

REACTIONS (2)
  - Cataract [Unknown]
  - Tooth disorder [Unknown]
